FAERS Safety Report 5374954-3 (Version None)
Quarter: 2007Q2

REPORT INFORMATION
  Report Type: 
  Country: None (occurrence: None)
  Receive Date: 20070629
  Receipt Date: 20070620
  Transmission Date: 20071010
  Serious: Yes (Hospitalization)
  Sender: FDA-Public Use
  Company Number: FR-SANOFI-SYNTHELABO-A02200701831

PATIENT
  Age: 65 Year
  Sex: Male

DRUGS (4)
  1. NOVATREX [Suspect]
     Indication: RHEUMATOID ARTHRITIS
     Route: 048
     Dates: start: 19970115, end: 20070325
  2. ZESTORETIC [Suspect]
     Indication: HYPERTENSION
     Dosage: UNK
     Route: 048
     Dates: start: 20030115, end: 20070416
  3. FONZYLANE [Suspect]
     Indication: ARTERITIS OBLITERANS
     Dosage: UNK
     Route: 048
     Dates: start: 20030615
  4. PLAVIX [Suspect]
     Indication: ARTERITIS OBLITERANS
     Dosage: UNK
     Route: 048
     Dates: start: 20030315

REACTIONS (4)
  - ASTHENIA [None]
  - DYSPNOEA EXERTIONAL [None]
  - INTERSTITIAL LUNG DISEASE [None]
  - WEIGHT DECREASED [None]
